FAERS Safety Report 7709182-7 (Version None)
Quarter: 2011Q3

REPORT INFORMATION
  Report Type: 
  Country: None (occurrence: None)
  Receive Date: 20110819
  Receipt Date: 20110804
  Transmission Date: 20111222
  Serious: Yes (Other)
  Sender: FDA-Public Use
  Company Number: DSA_47338_2011

PATIENT
  Age: 62 Year
  Sex: Female
  Weight: 64.8644 kg

DRUGS (12)
  1. ATIVAN [Suspect]
     Indication: DEPRESSION
     Dosage: (DF)
  2. ATIVAN [Suspect]
     Indication: PANIC DISORDER
     Dosage: (DF)
  3. ATIVAN [Suspect]
     Indication: POST-TRAUMATIC STRESS DISORDER
     Dosage: (DF)
  4. ATIVAN [Suspect]
     Indication: ANXIETY DISORDER
     Dosage: (DF)
  5. ZOLOFT [Suspect]
     Indication: ANXIETY DISORDER
     Dosage: (200 MG QD ORAL)
     Route: 048
     Dates: start: 20030101
  6. ZOLOFT [Suspect]
     Indication: DEPRESSION
     Dosage: (200 MG QD ORAL)
     Route: 048
     Dates: start: 20030101
  7. ZOLOFT [Suspect]
     Indication: PANIC DISORDER
     Dosage: (200 MG QD ORAL)
     Route: 048
     Dates: start: 20030101
  8. ZOLOFT [Suspect]
     Indication: POST-TRAUMATIC STRESS DISORDER
     Dosage: (200 MG QD ORAL)
     Route: 048
     Dates: start: 20030101
  9. SEROQEL 25 MG (NOT SPECIFIED) [Suspect]
     Indication: DEPRESSION
     Dosage: (25 MG QD)
  10. SEROQEL 25 MG (NOT SPECIFIED) [Suspect]
     Indication: POST-TRAUMATIC STRESS DISORDER
     Dosage: (25 MG QD)
  11. SEROQEL 25 MG (NOT SPECIFIED) [Suspect]
     Indication: ANXIETY DISORDER
     Dosage: (25 MG QD)
  12. SEROQEL 25 MG (NOT SPECIFIED) [Suspect]
     Indication: PANIC DISORDER
     Dosage: (25 MG QD)

REACTIONS (3)
  - BLOOD CHOLESTEROL INCREASED [None]
  - LOW DENSITY LIPOPROTEIN INCREASED [None]
  - BLOOD TRIGLYCERIDES INCREASED [None]
